FAERS Safety Report 6267062 (Version 3)
Quarter: 2015Q1

REPORT INFORMATION
  Report Type: Report from Study
  Country: ES (occurrence: ES)
  Receive Date: 20070321
  Receipt Date: 20150205
  Transmission Date: 20150721
  Serious: Yes (Death, Hospitalization)
  Sender: FDA-Public Use
  Company Number: ES-PFIZER INC-2005113454

PATIENT
  Age: 43 Year
  Sex: Male
  Weight: 73 kg

DRUGS (3)
  1. SUNITINIB MALATE [Suspect]
     Active Substance: SUNITINIB MALATE
     Dosage: 50 MG, DAILY CYCLE 2
     Route: 048
     Dates: start: 20050718, end: 20050806
  2. SUNITINIB MALATE [Suspect]
     Active Substance: SUNITINIB MALATE
     Dosage: 50 MG, DAILY CYCLIC
     Dates: start: 20050811, end: 20050816
  3. SUNITINIB MALATE [Suspect]
     Active Substance: SUNITINIB MALATE
     Indication: NON-SMALL CELL LUNG CANCER
     Dosage: 50 MG, DAILY FIRST CYCLE
     Route: 048
     Dates: start: 20050525, end: 20050620

REACTIONS (1)
  - Pneumothorax [Fatal]

NARRATIVE: CASE EVENT DATE: 20050806
